FAERS Safety Report 8171783-2 (Version None)
Quarter: 2012Q1

REPORT INFORMATION
  Report Type: 
  Country: None (occurrence: None)
  Receive Date: 20120113
  Receipt Date: 20111114
  Transmission Date: 20120608
  Serious: No
  Sender: FDA-Public Use
  Company Number: PHEH2011US009518

PATIENT
  Age: 11 Year
  Sex: Female
  Weight: 82 kg

DRUGS (2)
  1. ILARIS [Suspect]
     Dosage: 75 MG, FOR EVERY 8 WEEKS, SUBCUTANEOUS
     Route: 058
     Dates: start: 20100515
  2. MULTIVITAMINS (ASCORBIC ACID, ERGOCALCIFEROL, FOLIC ACID, NICOTINAMIDE [Concomitant]

REACTIONS (3)
  - OROPHARYNGEAL PAIN [None]
  - PYREXIA [None]
  - HEADACHE [None]
